FAERS Safety Report 6445936-5 (Version None)
Quarter: 2009Q4

REPORT INFORMATION
  Report Type: 
  Country: None (occurrence: None)
  Receive Date: 20091119
  Receipt Date: 20090422
  Transmission Date: 20100525
  Serious: No
  Sender: FDA-Public Use
  Company Number: A0767129A

PATIENT
  Age: 24 Year
  Sex: Female

DRUGS (1)
  1. BUPROPION HCL [Suspect]
     Indication: DEPRESSION
     Dosage: 100MG UNKNOWN
     Route: 065
     Dates: start: 20081201, end: 20090101

REACTIONS (4)
  - ASTHENIA [None]
  - ENERGY INCREASED [None]
  - NAUSEA [None]
  - PRODUCT QUALITY ISSUE [None]
